FAERS Safety Report 8269651-0 (Version None)
Quarter: 2012Q2

REPORT INFORMATION
  Report Type: 
  Country: None (occurrence: None)
  Receive Date: 20120410
  Receipt Date: 20120404
  Transmission Date: 20120825
  Serious: No
  Sender: FDA-Public Use
  Company Number: US-BIOGENIDEC-2012BI011740

PATIENT
  Sex: Female

DRUGS (1)
  1. AVONEX [Suspect]
     Indication: MULTIPLE SCLEROSIS
     Route: 030
     Dates: start: 20091230

REACTIONS (6)
  - HYPOAESTHESIA [None]
  - BURNING SENSATION [None]
  - FALL [None]
  - MULTIPLE SCLEROSIS RELAPSE [None]
  - STRESS [None]
  - ANXIETY [None]
